FAERS Safety Report 20769180 (Version 1)
Quarter: 2022Q2

REPORT INFORMATION
  Report Type: Spontaneous
  Country: HU (occurrence: HU)
  Receive Date: 20220429
  Receipt Date: 20220429
  Transmission Date: 20220721
  Serious: Yes (Hospitalization)
  Sender: FDA-Public Use
  Company Number: None

PATIENT
  Age: 46 Year
  Sex: Male
  Weight: 83 kg

DRUGS (1)
  1. PANTOPRAZOLE SODIUM [Suspect]
     Active Substance: PANTOPRAZOLE SODIUM
     Indication: Gastric ulcer
     Dosage: 40 MG, Q12H
     Route: 048
     Dates: start: 20220330, end: 20220401

REACTIONS (4)
  - Ocular icterus [Recovering/Resolving]
  - Chromaturia [Recovering/Resolving]
  - Hepatitis [Recovering/Resolving]
  - Dry mouth [Recovered/Resolved]

NARRATIVE: CASE EVENT DATE: 20220331
